FAERS Safety Report 21970486 (Version 1)
Quarter: 2023Q1

REPORT INFORMATION
  Report Type: Spontaneous
  Country: CN (occurrence: CN)
  Receive Date: 20230209
  Receipt Date: 20230209
  Transmission Date: 20230417
  Serious: Yes (Hospitalization, Other)
  Sender: FDA-Public Use
  Company Number: None

PATIENT
  Age: 48 Year
  Sex: Female
  Weight: 55 kg

DRUGS (4)
  1. CYCLOPHOSPHAMIDE [Suspect]
     Active Substance: CYCLOPHOSPHAMIDE
     Indication: Breast cancer female
     Dosage: 960 MG ONCE A DAY, DILUTED WITH 50 ML OF 0.9% SODIUM CHLORIDE, FOURTH ADJUVANT CHEMOTHERAPY
     Route: 041
     Dates: start: 20221217, end: 20221217
  2. SODIUM CHLORIDE [Suspect]
     Active Substance: SODIUM CHLORIDE
     Indication: Medication dilution
     Dosage: 50 ML, ONCE DAILY, CONCENTRATION OF 0.9%, INJECTION (USED TO DILUTE 960 MG OF CYCLOPHOSPHAMIDE)
     Route: 041
     Dates: start: 20221217, end: 20221217
  3. DEXTROSE [Suspect]
     Active Substance: DEXTROSE
     Indication: Medication dilution
     Dosage: 250 ML, ONCE A DAY, CONCENTRATION: 5% INJECTION (USED TO DILUTE 48 MG OF DOXORUBICIN HYDROCHLORIDE L
     Route: 041
     Dates: start: 20221217, end: 20221217
  4. DOXORUBICIN HYDROCHLORIDE [Suspect]
     Active Substance: DOXORUBICIN HYDROCHLORIDE
     Indication: Breast cancer female
     Dosage: 48 MG ONCE A DAY, DILUTED WITH 250 ML OF 5 % GLUCOSE, FOURTH ADJUVANT CHEMOTHERAPY
     Route: 041
     Dates: start: 20221217, end: 20221217

REACTIONS (1)
  - Myelosuppression [Recovering/Resolving]

NARRATIVE: CASE EVENT DATE: 20221226
